FAERS Safety Report 12167091 (Version 2)
Quarter: 2016Q1

REPORT INFORMATION
  Report Type: Spontaneous
  Country: FR (occurrence: FR)
  Receive Date: 20160310
  Receipt Date: 20160312
  Transmission Date: 20160526
  Serious: No
  Sender: FDA-Public Use
  Company Number: FR-ABBVIE-16K-056-1576468-00

PATIENT
  Age: 22 Year
  Sex: Male

DRUGS (3)
  1. VENOFER [Concomitant]
     Active Substance: IRON SUCROSE
     Indication: PRODUCT USED FOR UNKNOWN INDICATION
     Route: 042
  2. IRON [Concomitant]
     Active Substance: IRON
     Indication: PRODUCT USED FOR UNKNOWN INDICATION
     Route: 048
  3. HUMIRA [Suspect]
     Active Substance: ADALIMUMAB
     Indication: CROHN^S DISEASE
     Route: 058
     Dates: start: 2015

REACTIONS (1)
  - Anaemia [Unknown]
